FAERS Safety Report 23668366 (Version 2)
Quarter: 2024Q2

REPORT INFORMATION
  Report Type: Report from Study
  Country: US (occurrence: US)
  Receive Date: 20240325
  Receipt Date: 20240418
  Transmission Date: 20240715
  Serious: No
  Sender: FDA-Public Use
  Company Number: US-KYOWAKIRIN-2024KK005702

PATIENT

DRUGS (4)
  1. NOURIANZ [Suspect]
     Active Substance: ISTRADEFYLLINE
     Indication: Parkinson^s disease
     Dosage: 20 MG, BID (20MG TWICE DAILY)
     Route: 065
  2. NOURIANZ [Suspect]
     Active Substance: ISTRADEFYLLINE
     Dosage: 40 MG, QD (EVERY MORNING)
     Route: 048
     Dates: start: 202312
  3. NOURIANZ [Concomitant]
     Active Substance: ISTRADEFYLLINE
     Indication: Product used for unknown indication
     Dosage: 40 MG, QD (20MG TWO PILLS DAILY BUT WAS KNOCKED DOWN TO ONE DAILY)
     Route: 065
  4. NOURIANZ [Concomitant]
     Active Substance: ISTRADEFYLLINE
     Dosage: 20 MG, QD (20MG TWO PILLS DAILY BUT WAS KNOCKED DOWN TO ONE DAILY)
     Route: 065

REACTIONS (7)
  - Dry mouth [Unknown]
  - Obstruction [Unknown]
  - Movement disorder [Unknown]
  - Mood swings [Unknown]
  - Confusional state [Unknown]
  - Eye pruritus [Unknown]
  - Drug ineffective [Unknown]

NARRATIVE: CASE EVENT DATE: 20240317
